FAERS Safety Report 4456152-0 (Version None)
Quarter: 2004Q3

REPORT INFORMATION
  Report Type: 
  Country: None (occurrence: None)
  Receive Date: 20040920
  Receipt Date: 20040909
  Transmission Date: 20050211
  Serious: Yes (Other)
  Sender: FDA-Public Use
  Company Number: 2004-09-0368

PATIENT
  Age: 3 Year
  Sex: Male

DRUGS (3)
  1. CELESTENE (BETAMETHASONE) ORAL SOLUTION [Suspect]
     Indication: LARYNGITIS
  2. ..... [Suspect]
  3. PARACETAMOL [Concomitant]

REACTIONS (1)
  - EXTRAPYRAMIDAL DISORDER [None]
